FAERS Safety Report 8187149-5 (Version None)
Quarter: 2012Q1

REPORT INFORMATION
  Report Type: 
  Country: None (occurrence: None)
  Receive Date: 20120306
  Receipt Date: 20120220
  Transmission Date: 20120608
  Serious: Yes (Hospitalization)
  Sender: FDA-Public Use
  Company Number: CH-FRI-1000027365

PATIENT
  Sex: Female

DRUGS (12)
  1. SEROQUEL [Suspect]
     Indication: SUPPLEMENTATION THERAPY
     Dosage: 50 MG
     Route: 048
     Dates: start: 20110804, end: 20110810
  2. ZOLPIDEM [Concomitant]
     Indication: SLEEP DISORDER
     Dosage: 12.5 MG
     Route: 048
     Dates: start: 20110902
  3. LORAZEPAM [Concomitant]
     Indication: ANXIETY
     Dosage: 1 MG
     Route: 048
     Dates: start: 20110826, end: 20110904
  4. SEROQUEL [Suspect]
     Indication: SLEEP DISORDER
     Dosage: 50 MG
     Route: 048
     Dates: start: 20110101, end: 20110401
  5. LORAZEPAM [Concomitant]
     Dosage: 3 MG
     Route: 048
     Dates: start: 20110905, end: 20110913
  6. SEROQUEL [Suspect]
     Dosage: 100 MG
     Route: 048
     Dates: start: 20110811
  7. ESCITALOPRAM [Suspect]
     Indication: ANTIDEPRESSANT THERAPY
     Dosage: 10 MG
     Route: 048
     Dates: start: 20110831, end: 20110917
  8. REMERON [Suspect]
     Indication: SLEEP DISORDER
     Dosage: 45 MG
     Route: 048
     Dates: start: 20110804, end: 20110831
  9. LORAZEPAM [Concomitant]
     Indication: AGITATION
     Dosage: 2.5 MG
     Route: 048
     Dates: start: 20110804, end: 20110825
  10. LORAZEPAM [Concomitant]
     Dosage: 2 MG
     Route: 048
     Dates: start: 20110914
  11. REMERON [Suspect]
     Indication: ANTIDEPRESSANT THERAPY
     Dosage: 45 MG
     Route: 048
     Dates: start: 20110101, end: 20110401
  12. REMERON [Suspect]
     Dosage: 30 MG
     Route: 048
     Dates: start: 20110901, end: 20110917

REACTIONS (5)
  - ANXIETY [None]
  - HYPONATRAEMIA [None]
  - CONVULSION [None]
  - AGITATION [None]
  - ASTHENIA [None]
